FAERS Safety Report 15067732 (Version 1)
Quarter: 2018Q2

REPORT INFORMATION
  Report Type: Spontaneous
  Country: US (occurrence: US)
  Receive Date: 20180606
  Receipt Date: 20180606
  Transmission Date: 20180711
  Serious: Yes (Other)
  Sender: FDA-Public Use
  Company Number: None

PATIENT
  Age: 72 Year
  Sex: Male
  Weight: 94 kg

DRUGS (1)
  1. DAPTOMYCIN 500MG VIAL [Suspect]
     Active Substance: DAPTOMYCIN
     Indication: ARTHRITIS INFECTIVE
     Route: 042

REACTIONS (4)
  - Tremor [None]
  - Blood pressure increased [None]
  - Heart rate increased [None]
  - Chills [None]

NARRATIVE: CASE EVENT DATE: 20180521
